FAERS Safety Report 14346676 (Version 1)
Quarter: 2018Q1

REPORT INFORMATION
  Report Type: Report from Study
  Country: JP (occurrence: JP)
  Receive Date: 20180103
  Receipt Date: 20180103
  Transmission Date: 20180509
  Serious: Yes (Death)
  Sender: FDA-Public Use
  Company Number: JP-VIFOR (INTERNATIONAL) INC.-VIT-2017-14400

PATIENT
  Age: 72 Year
  Sex: Male

DRUGS (2)
  1. FESIN [Concomitant]
     Active Substance: IRON SUCROSE
  2. MIRCERA [Suspect]
     Active Substance: METHOXY POLYETHYLENE GLYCOL-EPOETIN BETA
     Indication: NEPHROGENIC ANAEMIA
     Route: 042
     Dates: start: 20140211, end: 2014

REACTIONS (2)
  - Localised infection [Fatal]
  - Sepsis [Fatal]

NARRATIVE: CASE EVENT DATE: 20141121
